FAERS Safety Report 6965476-4 (Version None)
Quarter: 2010Q3

REPORT INFORMATION
  Report Type: 
  Country: None (occurrence: None)
  Receive Date: 20100903
  Receipt Date: 20100826
  Transmission Date: 20110219
  Serious: Yes (Hospitalization)
  Sender: FDA-Public Use
  Company Number: B0671705A

PATIENT
  Age: 22 Year
  Sex: Male

DRUGS (2)
  1. SERETIDE [Suspect]
     Dosage: 50PUFF SINGLE DOSE
     Route: 055
     Dates: start: 20100703, end: 20100703
  2. PULMICORT [Concomitant]
     Indication: ASTHMA
     Route: 065

REACTIONS (14)
  - ACID BASE BALANCE ABNORMAL [None]
  - BLOOD GLUCOSE INCREASED [None]
  - ELECTROCARDIOGRAM ABNORMAL [None]
  - HOT FLUSH [None]
  - HYPOKALAEMIA [None]
  - HYPONATRAEMIA [None]
  - INTENTIONAL OVERDOSE [None]
  - MALAISE [None]
  - PALPITATIONS [None]
  - PARAESTHESIA [None]
  - RENAL IMPAIRMENT [None]
  - SINUS TACHYCARDIA [None]
  - TACHYPNOEA [None]
  - TREMOR [None]
